APPROVED DRUG PRODUCT: ZULRESSO
Active Ingredient: BREXANOLONE
Strength: 100MG/20ML (5MG/ML)
Dosage Form/Route: SOLUTION;INTRAVENOUS
Application: N211371 | Product #001
Applicant: SAGE THERAPEUTICS INC
Approved: Jun 17, 2019 | RLD: Yes | RS: No | Type: DISCN

PATENTS:
Patent 10940156 | Expires: Mar 8, 2037
Patent 10251894 | Expires: Nov 27, 2033
Patent 8410077 | Expires: Mar 13, 2029
Patent 9200088 | Expires: Mar 13, 2029
Patent 9750822 | Expires: Mar 13, 2029
Patent 7635773 | Expires: Mar 13, 2029
Patent 10322139 | Expires: Jan 23, 2033
Patent 10117951 | Expires: Mar 13, 2029